FAERS Safety Report 9230184 (Version 2)
Quarter: 2014Q2

REPORT INFORMATION
  Report Type: Report from Study
  Country: CA (occurrence: CA)
  Receive Date: 20130415
  Receipt Date: 20140402
  Transmission Date: 20141212
  Serious: Yes (Other)
  Sender: FDA-Public Use
  Company Number: CA-JNJFOC-20130403699

PATIENT
  Age: 35 Year
  Sex: Female
  Weight: 71 kg

DRUGS (5)
  1. REMICADE [Suspect]
     Indication: CROHN^S DISEASE
     Route: 042
     Dates: start: 20101202
  2. BIRTH CONTROL PILLS [Concomitant]
     Route: 065
  3. PAXIL [Concomitant]
     Route: 065
  4. TECTA [Concomitant]
     Route: 065
  5. PERCOCET [Concomitant]
     Route: 065

REACTIONS (2)
  - Small intestinal stenosis [Not Recovered/Not Resolved]
  - Colostomy [Unknown]
